FAERS Safety Report 4840978-5 (Version None)
Quarter: 2005Q4

REPORT INFORMATION
  Report Type: 
  Country: None (occurrence: None)
  Receive Date: 20051130
  Receipt Date: 20050811
  Transmission Date: 20060501
  Serious: No
  Sender: FDA-Public Use
  Company Number: US-BRISTOL-MYERS SQUIBB COMPANY-13075395

PATIENT
  Age: 37 None
  Sex: Female

DRUGS (2)
  1. ABILIFY [Suspect]
     Indication: DELUSION
     Route: 048
     Dates: start: 20050501
  2. SERTRALINE HCL [Concomitant]

REACTIONS (1)
  - WEIGHT INCREASED [None]
